FAERS Safety Report 7920002-8 (Version None)
Quarter: 2011Q4

REPORT INFORMATION
  Report Type: 
  Country: None (occurrence: None)
  Receive Date: 20111117
  Receipt Date: 20111107
  Transmission Date: 20120403
  Serious: Yes (Hospitalization)
  Sender: FDA-Public Use
  Company Number: JP-BRISTOL-MYERS SQUIBB COMPANY-16213852

PATIENT
  Age: 70 Year
  Sex: Male

DRUGS (5)
  1. METFORMIN HCL [Suspect]
     Indication: TYPE 2 DIABETES MELLITUS
     Route: 048
     Dates: start: 20110526, end: 20110917
  2. LANTUS [Concomitant]
     Dosage: INJECTION
     Route: 058
     Dates: start: 20091217
  3. HUMALOG [Concomitant]
     Dosage: INJECTION
     Route: 058
     Dates: start: 20080825
  4. NORVASC [Suspect]
     Route: 048
     Dates: start: 20110918, end: 20111011
  5. CRESTOR [Concomitant]
     Route: 048
     Dates: start: 20091217

REACTIONS (3)
  - OEDEMA [None]
  - MALAISE [None]
  - DRUG DISPENSING ERROR [None]
